FAERS Safety Report 8064063-7 (Version None)
Quarter: 2012Q1

REPORT INFORMATION
  Report Type: 
  Country: None (occurrence: None)
  Receive Date: 20120123
  Receipt Date: 20120120
  Transmission Date: 20120608
  Serious: Yes (Hospitalization)
  Sender: FDA-Public Use
  Company Number: US-GLAXOSMITHKLINE-A0818304A

PATIENT
  Age: 59 Year
  Sex: Male
  Weight: 136.4 kg

DRUGS (6)
  1. METFORMIN HYDROCHLORIDE [Concomitant]
  2. GLIPIZIDE [Concomitant]
  3. LIPITOR [Concomitant]
  4. GLIMEPIRIDE [Concomitant]
  5. AVANDIA [Suspect]
     Indication: DIABETES MELLITUS
     Dosage: 8MG PER DAY
     Route: 048
     Dates: start: 20030624, end: 20091022
  6. LEVEMIR [Concomitant]

REACTIONS (6)
  - SPEECH DISORDER [None]
  - PULMONARY EMBOLISM [None]
  - CARDIAC DISORDER [None]
  - TRANSIENT ISCHAEMIC ATTACK [None]
  - CEREBROVASCULAR ACCIDENT [None]
  - PARALYSIS [None]
